FAERS Safety Report 15135090 (Version 1)
Quarter: 2018Q3

REPORT INFORMATION
  Report Type: Report from Study
  Country: FR (occurrence: FR)
  Receive Date: 20180712
  Receipt Date: 20180712
  Transmission Date: 20181010
  Serious: Yes (Other)
  Sender: FDA-Public Use
  Company Number: FR-PFIZER INC-2018278880

PATIENT
  Age: 68 Year
  Sex: Male
  Weight: 57 kg

DRUGS (4)
  1. CYTARABINE. [Concomitant]
     Active Substance: CYTARABINE
     Dosage: 335 MG, 1X/DAY(/24H)
     Dates: start: 20180503, end: 20180509
  2. TEMESTA (LORAZEPAM) [Suspect]
     Active Substance: LORAZEPAM
     Indication: ANXIETY
     Dosage: 1.25 MG, DAILY
     Route: 048
     Dates: start: 20180425, end: 20180517
  3. MYLOTARG [Suspect]
     Active Substance: GEMTUZUMAB OZOGAMICIN
     Dosage: 5 MG, DAY 1
     Dates: start: 20180503
  4. MYLOTARG [Suspect]
     Active Substance: GEMTUZUMAB OZOGAMICIN
     Dosage: 5 MG, DAY 4
     Dates: start: 20180507

REACTIONS (1)
  - Fall [Recovered/Resolved]

NARRATIVE: CASE EVENT DATE: 20180517
